FAERS Safety Report 9980878 (Version 1)
Quarter: 2014Q1

REPORT INFORMATION
  Report Type: Spontaneous
  Country: IT (occurrence: IT)
  Receive Date: 20140307
  Receipt Date: 20140307
  Transmission Date: 20141002
  Serious: Yes (Life-Threatening)
  Sender: FDA-Public Use
  Company Number: PHHY2014IT024708

PATIENT
  Sex: Male

DRUGS (7)
  1. LEVOFLOXACIN [Suspect]
     Indication: BRONCHITIS CHRONIC
     Dosage: 500 MG, QD
     Route: 048
     Dates: start: 20140119, end: 20140121
  2. THEO-DUR [Interacting]
     Indication: CHRONIC OBSTRUCTIVE PULMONARY DISEASE
     Dosage: 600 MG, QD
     Route: 048
  3. KEPPRA [Concomitant]
     Indication: CONVULSION
     Dosage: 2 DF, UNK
     Route: 048
     Dates: start: 20120501, end: 20140122
  4. TRITTICO [Concomitant]
     Dosage: 75 MG, UNK
     Route: 048
  5. SERETIDE DISKUS [Concomitant]
     Indication: CHRONIC OBSTRUCTIVE PULMONARY DISEASE
  6. VERTISERC [Concomitant]
  7. VERAPAMIL [Concomitant]
     Indication: TACHYCARDIA
     Dosage: 120 MG, UNK
     Route: 048

REACTIONS (3)
  - Drug prescribing error [Recovered/Resolved]
  - Convulsion [Recovered/Resolved]
  - Drug interaction [Recovered/Resolved]
